FAERS Safety Report 8903041 (Version 2)
Quarter: 2013Q2

REPORT INFORMATION
  Report Type: Report from Study
  Country: KR (occurrence: KR)
  Receive Date: 20121113
  Receipt Date: 20130611
  Transmission Date: 20140414
  Serious: Yes (Hospitalization)
  Sender: FDA-Public Use
  Company Number: KR-UCBSA-070367

PATIENT
  Age: 50 Year
  Sex: Female
  Weight: 55 kg

DRUGS (12)
  1. CERTOLIZUMAB PEGOL [Suspect]
     Indication: RHEUMATOID ARTHRITIS
     Route: 058
     Dates: start: 20100811
  2. PREDNISOLONE [Concomitant]
     Indication: RHEUMATOID ARTHRITIS
     Route: 048
     Dates: start: 20030809
  3. METHOTREXATE [Concomitant]
     Indication: RHEUMATOID ARTHRITIS
     Route: 048
     Dates: start: 20090511, end: 20121101
  4. FOLIC ACID [Concomitant]
     Indication: PROPHYLAXIS
     Route: 048
     Dates: start: 20010811
  5. CELECOXIB [Concomitant]
     Indication: RHEUMATOID ARTHRITIS
     Route: 048
     Dates: start: 20070320
  6. REBAMIPIDE [Concomitant]
     Indication: PROPHYLAXIS AGAINST GASTROINTESTINAL ULCER
     Route: 048
     Dates: start: 20030225
  7. ATORVASTATIN [Concomitant]
     Indication: HYPERCHOLESTEROLAEMIA
     Route: 048
     Dates: start: 20110126
  8. OMEPRAZOLE [Concomitant]
     Indication: GASTROINTESTINAL DISORDER
     Route: 048
     Dates: start: 20111005, end: 20121031
  9. TACROLIMUS [Concomitant]
     Indication: MECHANICAL URTICARIA
     Route: 061
     Dates: start: 20110502
  10. DESOXIMETASONE [Concomitant]
     Indication: MECHANICAL URTICARIA
     Route: 061
     Dates: start: 20110723
  11. DESONIDE [Concomitant]
     Indication: MECHANICAL URTICARIA
     Route: 061
     Dates: start: 20110723
  12. MICRONIZED CICLESONIDE [Concomitant]
     Indication: MUCOSAL DRYNESS
     Dates: start: 20110914

REACTIONS (1)
  - Pyelonephritis acute [Recovered/Resolved]
